FAERS Safety Report 6317206-7 (Version None)
Quarter: 2009Q3

REPORT INFORMATION
  Report Type: 
  Country: None (occurrence: None)
  Receive Date: 20090820
  Receipt Date: 20090813
  Transmission Date: 20100115
  Serious: Yes (Other)
  Sender: FDA-Public Use
  Company Number: US-AMGEN-QUU360028

PATIENT
  Sex: Female

DRUGS (3)
  1. ENBREL [Suspect]
     Indication: RHEUMATOID ARTHRITIS
     Route: 058
     Dates: start: 20040107
  2. METHOTREXATE [Concomitant]
     Route: 048
  3. BONIVA [Concomitant]

REACTIONS (7)
  - GINGIVAL PAIN [None]
  - IMPAIRED HEALING [None]
  - LOOSE TOOTH [None]
  - OEDEMA PERIPHERAL [None]
  - TOOTH ABSCESS [None]
  - TOOTH DISORDER [None]
  - VASCULITIS [None]
